FAERS Safety Report 14250476 (Version 2)
Quarter: 2018Q2

REPORT INFORMATION
  Report Type: Other
  Country: None (occurrence: DE)
  Receive Date: 20171205
  Receipt Date: 20180626
  Transmission Date: 20180711
  Serious: No
  Sender: FDA-Public Use
  Company Number: DE-LUPIN PHARMACEUTICALS INC.-2017-03490

PATIENT

DRUGS (4)
  1. EZETROL [Suspect]
     Active Substance: EZETIMIBE
     Indication: ARTERIAL REPAIR
     Dosage: 10 MG, UNK
     Route: 065
     Dates: start: 2016, end: 2016
  2. ATORVASTATIN [Suspect]
     Active Substance: ATORVASTATIN
     Indication: STENT PLACEMENT
     Dosage: 10 MG, UNK
     Route: 065
     Dates: start: 2015, end: 2015
  3. SIMVASTATIN. [Suspect]
     Active Substance: SIMVASTATIN
     Indication: STENT PLACEMENT
     Dosage: 40 MG, UNK
     Route: 065
     Dates: start: 2016, end: 2016
  4. PRAVASTATIN. [Suspect]
     Active Substance: PRAVASTATIN
     Indication: STENT PLACEMENT
     Dosage: 40 MG, UNK
     Route: 065
     Dates: start: 2016, end: 2016

REACTIONS (1)
  - Myalgia [Recovered/Resolved]

NARRATIVE: CASE EVENT DATE: 2015
